FAERS Safety Report 16659635 (Version 1)
Quarter: 2019Q3

REPORT INFORMATION
  Report Type: Other
  Country: US (occurrence: US)
  Receive Date: 20190802
  Receipt Date: 20190802
  Transmission Date: 20191004
  Serious: Yes (Death)
  Sender: FDA-Public Use
  Company Number: US-GRANULES INDIA LIMITED-2072673

PATIENT
  Age: 54 Year
  Sex: Female

DRUGS (5)
  1. METAXALONE. [Suspect]
     Active Substance: METAXALONE
     Route: 065
  2. ACETAMINOPHEN EXTENDED-RELEASE TABLETS USP, 650 MG (OTC)-ANDA: 211544 [Suspect]
     Active Substance: ACETAMINOPHEN
     Route: 065
  3. GABAPENTIN CAPSULES USP, 100MG, 300 MG AND 400 MG [Suspect]
     Active Substance: GABAPENTIN
     Indication: PRODUCT USED FOR UNKNOWN INDICATION
     Route: 065
  4. CITALOPRAM [Suspect]
     Active Substance: CITALOPRAM HYDROBROMIDE
     Route: 065
  5. FLURAZEPAM [Concomitant]
     Active Substance: FLURAZEPAM HYDROCHLORIDE
     Route: 065

REACTIONS (3)
  - Depressed level of consciousness [Fatal]
  - Completed suicide [Fatal]
  - Toxicity to various agents [Fatal]
